FAERS Safety Report 7357348-0 (Version None)
Quarter: 2011Q1

REPORT INFORMATION
  Report Type: 
  Country: None (occurrence: None)
  Receive Date: 20110308
  Receipt Date: 20110224
  Transmission Date: 20110831
  Serious: Yes (Other)
  Sender: FDA-Public Use
  Company Number: DSU-2011-01433

PATIENT
  Age: 49 Year
  Sex: Male
  Weight: 72.5755 kg

DRUGS (7)
  1. NASONEX (MOMETASONE FURATE) (MOMETASONE FUROATE) [Concomitant]
  2. PROMETHAZINE (PROMETHAZINE) (SYRUP) (PROMETHAZINE) [Concomitant]
  3. ALLEGRA (FECOFENADINE) (FEXOFENADINE) [Concomitant]
  4. ANTIBIOTICS (INGREDIENTS UNKNOWN) (ANTIBIOTICS) [Concomitant]
  5. LISINOPRIL [Concomitant]
  6. STEROIDS (INGREDIENTS UNKNOWN) (CORTICOSTEROID NOS) (CORTICOSTEROID NO [Concomitant]
  7. BENICAR [Suspect]
     Indication: HYPERTENSION
     Dosage: 20 MG (20 MG,QD), PER ORAL
     Route: 048
     Dates: start: 20110215, end: 20110223

REACTIONS (3)
  - DISORIENTATION [None]
  - DIZZINESS [None]
  - BLOOD PRESSURE INCREASED [None]
